FAERS Safety Report 9602068 (Version 2)
Quarter: 2013Q4

REPORT INFORMATION
  Report Type: Report from Study
  Country: CA (occurrence: CA)
  Receive Date: 20131007
  Receipt Date: 20131118
  Transmission Date: 20140711
  Serious: Yes (Death)
  Sender: FDA-Public Use
  Company Number: PHHY2013CA111316

PATIENT
  Sex: Female

DRUGS (10)
  1. CLOZARIL [Suspect]
     Indication: PSYCHOTIC DISORDER
     Dosage: 75 MG, DAILY (12.5 MG MORNING, 25 MG, 37.5 MG NIGHT)
     Route: 048
     Dates: start: 20110621
  2. CLOZARIL [Suspect]
     Indication: PARKINSON^S DISEASE
     Dosage: UNK
     Dates: start: 20110623
  3. EXELON [Concomitant]
     Dosage: 10 UKN, UNK
  4. ZOLOFT [Concomitant]
     Dosage: 150 MG, DAILY
  5. ATIVAN [Concomitant]
     Dosage: UNK UKN, PRN
  6. SYNTHROID [Concomitant]
     Dosage: 0.125 UKN, DAILY
  7. SINEMET [Concomitant]
     Dosage: UNK, PRN (1/2 CO BID + 1 CO 6 DIE)
  8. MOTILIUM//DOMPERIDONE [Concomitant]
     Dosage: 10 UKN, TID
  9. MORPHINE [Concomitant]
     Dosage: UNK
  10. SCOPOLAMINE [Concomitant]
     Dosage: UNK

REACTIONS (2)
  - Urinary tract infection [Fatal]
  - Parkinson^s disease [Fatal]
